FAERS Safety Report 10695260 (Version 2)
Quarter: 2015Q1

REPORT INFORMATION
  Report Type: Spontaneous
  Country: JP (occurrence: None)
  Receive Date: 20150106
  Receipt Date: 20150205
  Transmission Date: 20150721
  Serious: Yes (Other)
  Sender: FDA-Public Use
  Company Number: 2014FE03183

PATIENT
  Age: 79 Year
  Sex: Male
  Weight: 47 kg

DRUGS (13)
  1. MAGMITT (MAGNESIUM OXIDE) [Concomitant]
     Active Substance: MAGNESIUM OXIDE
  2. DIART (AZOSEMIDE) [Concomitant]
  3. CARBAZOCHROME SODIUM SULFONATE (CARBAZOCHROME SODIUM SULFONATE) [Concomitant]
  4. TAMSULOSIN HYDROCHLORIDE (TAMSULOSIN HYDROCHLORIDE) [Concomitant]
     Active Substance: TAMSULOSIN HYDROCHLORIDE
  5. TERNELIN (TIZANIDINE HYDROCHLORIDE) [Concomitant]
  6. TRAMAL (TRAMADOL HYDROCHLORIDE) [Concomitant]
  7. NAUZELIN (DOMPERIDONE) [Concomitant]
  8. DENOSUMAB [Suspect]
     Active Substance: DENOSUMAB
     Indication: PROSTATE CANCER
     Route: 058
     Dates: start: 20141030
  9. REBAMIPIDE (REBAMIPIDE) [Concomitant]
  10. GONAX [Suspect]
     Active Substance: DEGARELIX
     Indication: PROSTATE CANCER
     Dosage: FORMULATION: INJECTION
     Route: 058
     Dates: start: 20141030, end: 20141030
  11. FAMOTIDIN (FAMOTIDINE) ORODISPERSIBLE [Concomitant]
  12. LIPITOR [Concomitant]
     Active Substance: ATORVASTATIN CALCIUM
  13. LOXOPROFEN SODIUM (LOXOPROFEN SODIUM) [Concomitant]

REACTIONS (5)
  - Haemodialysis [None]
  - Blood sodium decreased [None]
  - Acute kidney injury [None]
  - Blood potassium increased [None]
  - Tumour lysis syndrome [None]

NARRATIVE: CASE EVENT DATE: 20141105
